FAERS Safety Report 5798236-0 (Version None)
Quarter: 2008Q3

REPORT INFORMATION
  Report Type: 
  Country: None (occurrence: None)
  Receive Date: 20080702
  Receipt Date: 20080625
  Transmission Date: 20090109
  Serious: Yes (Other)
  Sender: FDA-Public Use
  Company Number: CA-JNJFOC-20080605277

PATIENT
  Sex: Female

DRUGS (2)
  1. EXTRA STRENGTH TYLENOL SINUS DAYTIME [Suspect]
     Indication: HYPERSENSITIVITY
     Route: 048
  2. SYNTHROID [Concomitant]

REACTIONS (5)
  - DYSPNOEA [None]
  - LOSS OF CONSCIOUSNESS [None]
  - NAUSEA [None]
  - PALPITATIONS [None]
  - SOMNOLENCE [None]
